FAERS Safety Report 8890254 (Version 2)
Quarter: 2012Q4

REPORT INFORMATION
  Report Type: Spontaneous
  Country: JP (occurrence: None)
  Receive Date: 20121031
  Receipt Date: 20121114
  Transmission Date: 20130627
  Serious: No
  Sender: FDA-Public Use
  Company Number: TCI2012A06064

PATIENT
  Age: 23 Year
  Sex: Male

DRUGS (2)
  1. ROZEREM [Suspect]
     Indication: SLEEP LOSS
     Dosage: 8 mg (8 mg,1 in 1 D)  Per oral
     Route: 048
     Dates: start: 20120514, end: 20121011
  2. MYSLEE [Concomitant]

REACTIONS (2)
  - Convulsion [None]
  - Loss of consciousness [None]
